FAERS Safety Report 9048156 (Version 1)
Quarter: 2013Q1

REPORT INFORMATION
  Report Type: Spontaneous
  Country: US (occurrence: US)
  Receive Date: 20130204
  Receipt Date: 20130204
  Transmission Date: 20140127
  Serious: No
  Sender: FDA-Public Use
  Company Number: US-009507513-1302USA000216

PATIENT
  Age: 57 Year
  Sex: Male
  Weight: 82.86 kg

DRUGS (2)
  1. VICTRELIS [Suspect]
     Indication: HEPATITIS C
     Dosage: THREE TIMES A DAY
     Route: 048
     Dates: start: 201211
  2. RIBAVIRIN [Suspect]

REACTIONS (2)
  - Depression [Not Recovered/Not Resolved]
  - Weight decreased [Not Recovered/Not Resolved]
